FAERS Safety Report 4921991-6 (Version None)
Quarter: 2006Q1

REPORT INFORMATION
  Report Type: 
  Country: None (occurrence: None)
  Receive Date: 20060222
  Receipt Date: 20060222
  Transmission Date: 20060701
  Serious: Yes (Life-Threatening, Hospitalization)
  Sender: FDA-Public Use
  Company Number: None

PATIENT
  Age: 60 Year
  Sex: Female
  Weight: 83 kg

DRUGS (10)
  1. PRIZIDE 20/12.5 [Suspect]
     Indication: HYPERTENSION
     Dosage: TWO PO DAILY LONG-TIME
     Route: 048
  2. IRBESARTAN [Suspect]
     Indication: HYPERTENSION
     Dosage: 300 MG PO DAILY ^LONG-TIME^
     Route: 048
  3. ASPIRIN [Concomitant]
  4. AVAPRO [Concomitant]
  5. MINOXIDIL [Concomitant]
  6. GLUCOPHAGE [Concomitant]
  7. METOPROLOL [Concomitant]
  8. RELAFEN [Concomitant]
  9. DARVOCET-N 100 [Concomitant]
  10. WARFARIN SODIUM [Concomitant]

REACTIONS (4)
  - ANGIONEUROTIC OEDEMA [None]
  - PARAESTHESIA [None]
  - SWOLLEN TONGUE [None]
  - THROAT TIGHTNESS [None]
